FAERS Safety Report 14559811 (Version 1)
Quarter: 2018Q1

REPORT INFORMATION
  Report Type: Spontaneous
  Country: US (occurrence: US)
  Receive Date: 20180220
  Receipt Date: 20180220
  Transmission Date: 20180509
  Serious: Yes (Other)
  Sender: FDA-Public Use
  Company Number: None

PATIENT
  Age: 89 Year
  Sex: Female
  Weight: 54 kg

DRUGS (1)
  1. BUDESONIDE 3 MG [Suspect]
     Active Substance: BUDESONIDE
     Indication: DIARRHOEA
     Dates: start: 20180218, end: 20180219

REACTIONS (4)
  - Swollen tongue [None]
  - Lip swelling [None]
  - Mouth swelling [None]
  - Drug hypersensitivity [None]

NARRATIVE: CASE EVENT DATE: 20180218
